FAERS Safety Report 5252022-9 (Version None)
Quarter: 2007Q1

REPORT INFORMATION
  Report Type: 
  Country: None (occurrence: None)
  Receive Date: 20070221
  Receipt Date: 20070205
  Transmission Date: 20070707
  Serious: Yes (Other)
  Sender: FDA-Public Use
  Company Number: 2007-154208-NL

PATIENT
  Age: 22 Year
  Sex: Female
  Weight: 68 kg

DRUGS (2)
  1. NUVARING [Suspect]
     Indication: CONTRACEPTION
     Dosage: VAGINAL, 3 WEEKS IN, 1 WEEK OUT
     Route: 067
     Dates: start: 20031201, end: 20060901
  2. NUVARING [Suspect]
     Indication: CONTRACEPTION
     Dosage: VAGINAL, 3 WEEKS IN, 1 WEEK OUT
     Route: 067
     Dates: start: 20070128

REACTIONS (2)
  - ABDOMINAL PAIN [None]
  - SMEAR CERVIX ABNORMAL [None]
